FAERS Safety Report 5788917-7 (Version None)
Quarter: 2008Q2

REPORT INFORMATION
  Report Type: 
  Country: None (occurrence: None)
  Receive Date: 20080625
  Receipt Date: 20080625
  Transmission Date: 20081010
  Serious: Yes (Disabling)
  Sender: FDA-Public Use
  Company Number: None

PATIENT
  Age: 60 Year
  Sex: Female
  Weight: 58.9676 kg

DRUGS (1)
  1. ALENDRONATE SODIUM [Suspect]
     Indication: OSTEOPENIA
     Dosage: 70 MG 1X WEEKLY PO
     Route: 048
     Dates: start: 20080430, end: 20080528

REACTIONS (3)
  - BACK PAIN [None]
  - GROIN PAIN [None]
  - PAIN IN EXTREMITY [None]
